FAERS Safety Report 8958129 (Version 2)
Quarter: 2013Q1

REPORT INFORMATION
  Report Type: Report from Study
  Country: FR (occurrence: FR)
  Receive Date: 20121211
  Receipt Date: 20130104
  Transmission Date: 20140127
  Serious: Yes (Death, Hospitalization)
  Sender: FDA-Public Use
  Company Number: FR-CELGENEUS-056-21880-12113209

PATIENT
  Age: 72 Year
  Sex: Male
  Weight: 69 kg

DRUGS (4)
  1. REVLIMID [Suspect]
     Indication: B-CELL LYMPHOMA
     Dosage: 10 MILLIGRAM
     Route: 048
     Dates: start: 20121115, end: 20121128
  2. GA-101 [Suspect]
     Indication: B-CELL LYMPHOMA
     Dosage: 1000 MILLIGRAM
     Route: 065
     Dates: start: 20121122, end: 20121122
  3. KARDEGIC [Concomitant]
     Indication: PROPHYLAXIS
     Route: 065
     Dates: start: 20121115, end: 20121125
  4. LASILIX [Concomitant]
     Indication: PRODUCT USED FOR UNKNOWN INDICATION
     Route: 065

REACTIONS (2)
  - Cardiac arrest [Fatal]
  - Pleural effusion [Not Recovered/Not Resolved]
